FAERS Safety Report 7606897-6 (Version None)
Quarter: 2011Q3

REPORT INFORMATION
  Report Type: 
  Country: None (occurrence: None)
  Receive Date: 20110713
  Receipt Date: 20110706
  Transmission Date: 20111222
  Serious: Yes (Death)
  Sender: FDA-Public Use
  Company Number: CN-GLAXOSMITHKLINE-B0732678A

PATIENT
  Sex: Female

DRUGS (2)
  1. TAXOL [Concomitant]
     Indication: OVARIAN CANCER
     Dosage: 135MGM2 PER DAY
     Route: 042
     Dates: start: 20110601, end: 20110701
  2. HYCAMTIN [Suspect]
     Indication: OVARIAN CANCER
     Dosage: 1.25MGM2 PER DAY
     Route: 042
     Dates: start: 20110601, end: 20110701

REACTIONS (4)
  - WHITE BLOOD CELL COUNT DECREASED [None]
  - CHEST DISCOMFORT [None]
  - DEATH [None]
  - PYREXIA [None]
